FAERS Safety Report 14073969 (Version 1)
Quarter: 2017Q4

REPORT INFORMATION
  Report Type: Spontaneous
  Country: SE (occurrence: SE)
  Receive Date: 20171011
  Receipt Date: 20171011
  Transmission Date: 20180321
  Serious: Yes (Other)
  Sender: FDA-Public Use
  Company Number: SE-PFIZER INC-2017433663

PATIENT
  Sex: Female

DRUGS (1)
  1. SALAZOPYRIN EN [Suspect]
     Active Substance: SULFASALAZINE
     Dosage: 2X2 TABLETS/DAY

REACTIONS (2)
  - Chronic obstructive pulmonary disease [Not Recovered/Not Resolved]
  - Condition aggravated [Not Recovered/Not Resolved]
